FAERS Safety Report 6878872-0 (Version None)
Quarter: 2010Q3

REPORT INFORMATION
  Report Type: 
  Country: None (occurrence: None)
  Receive Date: 20100728
  Receipt Date: 20100716
  Transmission Date: 20110219
  Serious: Yes (Other)
  Sender: FDA-Public Use
  Company Number: GXKR2010GB07955

PATIENT
  Age: 70 Year
  Sex: Male
  Weight: 73 kg

DRUGS (5)
  1. MIRTAZAPINE [Suspect]
     Indication: DEPRESSION
     Dosage: 45 MG, QD
     Route: 048
     Dates: start: 20060601
  2. MIRTAZAPINE [Suspect]
     Indication: ANXIETY
     Dosage: UNKNOWN
  3. VENLAFAXINE HCL [Suspect]
     Indication: DEPRESSION
     Dosage: 37.5 MG, QD
     Route: 065
     Dates: start: 20060201
  4. VENLAFAXINE HCL [Suspect]
     Indication: ANXIETY
  5. CLONAZEPAM [Concomitant]
     Dosage: 0.75 MG, QD
     Route: 065

REACTIONS (2)
  - COGWHEEL RIGIDITY [None]
  - PARKINSONIAN GAIT [None]
